FAERS Safety Report 4795170-X (Version None)
Quarter: 2005Q4

REPORT INFORMATION
  Report Type: 
  Country: None (occurrence: None)
  Receive Date: 20051006
  Receipt Date: 20050927
  Transmission Date: 20060501
  Serious: Yes (Death)
  Sender: FDA-Public Use
  Company Number: US-2005-006224

PATIENT
  Age: 56 Year
  Sex: Female

DRUGS (11)
  1. BETASERON [Suspect]
     Indication: RELAPSING-REMITTING MULTIPLE SCLEROSIS
     Dosage: 8 MIU EVERY 2 D SUBCUTANEOUS
     Route: 058
     Dates: start: 19970909, end: 20050313
  2. FOLIC ACID [Concomitant]
  3. PAXIL [Concomitant]
  4. LORAZEPAM [Concomitant]
  5. ALPRAZOLAM [Concomitant]
  6. PROTONIX [Concomitant]
  7. MULTIVITAMINS (RETINOL, PANTHENOL) [Concomitant]
  8. MYSOLINE ^ASTRA^ (PRIMIDONE) [Concomitant]
  9. DUONEB (IPRATROPIUM BROMIDE) [Concomitant]
  10. ASPIRIN [Concomitant]
  11. WELLBUTRIN SR [Concomitant]

REACTIONS (1)
  - PROGRESSIVE MULTIPLE SCLEROSIS [None]
